FAERS Safety Report 8315606-7 (Version None)
Quarter: 2012Q2

REPORT INFORMATION
  Report Type: 
  Country: None (occurrence: None)
  Receive Date: 20120426
  Receipt Date: 20120416
  Transmission Date: 20120825
  Serious: Yes (Death)
  Sender: FDA-Public Use
  Company Number: PH-BAXTER-2012BAX003150

PATIENT
  Sex: Male

DRUGS (1)
  1. DIANEAL PD-2 W/ DEXTROSE 4.25% [Suspect]
     Route: 033
     Dates: start: 20120208

REACTIONS (1)
  - MYOCARDIAL INFARCTION [None]
